FAERS Safety Report 9420931 (Version 1)
Quarter: 2013Q3

REPORT INFORMATION
  Report Type: Spontaneous
  Country: US (occurrence: US)
  Receive Date: 20130725
  Receipt Date: 20130725
  Transmission Date: 20140515
  Serious: No
  Sender: FDA-Public Use
  Company Number: US-ABBOTT-13P-163-1114678-00

PATIENT
  Age: 69 Year
  Sex: Female
  Weight: 59.93 kg

DRUGS (6)
  1. SYNTHROID [Suspect]
     Indication: HYPOTHYROIDISM
  2. SYNTHROID [Suspect]
  3. SYNTHROID [Suspect]
  4. SYNTHROID [Suspect]
  5. SYNTHROID [Suspect]
  6. PRAVASTATIN +PHARMA [Concomitant]
     Indication: BLOOD CHOLESTEROL INCREASED
     Dates: start: 201212

REACTIONS (4)
  - Blood thyroid stimulating hormone increased [Not Recovered/Not Resolved]
  - Heart rate increased [Not Recovered/Not Resolved]
  - Blood pressure increased [Not Recovered/Not Resolved]
  - Diarrhoea [Unknown]
